FAERS Safety Report 9601245 (Version 1)
Quarter: 2013Q4

REPORT INFORMATION
  Report Type: Spontaneous
  Country: GB (occurrence: GB)
  Receive Date: 20131006
  Receipt Date: 20131006
  Transmission Date: 20140711
  Serious: Yes (Disabling, Other)
  Sender: FDA-Public Use
  Company Number: GB-MYLANLABS-2013S1021503

PATIENT
  Age: 41 Year
  Sex: Female
  Weight: 95 kg

DRUGS (3)
  1. SERTRALINE [Suspect]
     Indication: DEPRESSION
     Route: 048
  2. SERTRALINE [Suspect]
     Indication: POST-TRAUMATIC STRESS DISORDER
     Route: 048
  3. SERTRALINE [Concomitant]
     Indication: PRODUCT USED FOR UNKNOWN INDICATION

REACTIONS (7)
  - Confusional state [Unknown]
  - Dehydration [Unknown]
  - Diarrhoea [Unknown]
  - Dizziness [Unknown]
  - Malaise [Unknown]
  - Nausea [Unknown]
  - Product substitution issue [Unknown]
